FAERS Safety Report 5398638-0 (Version None)
Quarter: 2007Q3

REPORT INFORMATION
  Report Type: 
  Country: None (occurrence: None)
  Receive Date: 20070726
  Receipt Date: 20060620
  Transmission Date: 20080115
  Serious: No
  Sender: FDA-Public Use
  Company Number: US-AMGEN-KDL183827

PATIENT
  Sex: Female

DRUGS (10)
  1. PROCRIT [Suspect]
     Indication: RENAL FAILURE CHRONIC
     Dates: start: 20060316
  2. COLCHICINE [Concomitant]
  3. ALLOPURINOL [Concomitant]
  4. LABETALOL HCL [Concomitant]
  5. LASIX [Concomitant]
  6. BICITRA [Concomitant]
  7. XANAX [Concomitant]
  8. ZOLOFT [Concomitant]
  9. NORVASC [Concomitant]
  10. RALOXIFENE HCL [Concomitant]

REACTIONS (1)
  - NIGHT SWEATS [None]
